FAERS Safety Report 5717118-3 (Version None)
Quarter: 2008Q2

REPORT INFORMATION
  Report Type: 
  Country: None (occurrence: None)
  Receive Date: 20080424
  Receipt Date: 20080411
  Transmission Date: 20081010
  Serious: No
  Sender: FDA-Public Use
  Company Number: US-PFIZER INC-2007107994

PATIENT
  Sex: Female
  Weight: 62.6 kg

DRUGS (7)
  1. CHANTIX [Suspect]
     Indication: SMOKING CESSATION THERAPY
     Route: 048
     Dates: start: 20070101, end: 20070101
  2. TOPAMAX [Suspect]
     Indication: ARTHRALGIA
     Dosage: FREQ:EVERY DAY
     Dates: start: 20070101, end: 20070101
  3. TOPAMAX [Suspect]
     Indication: WEIGHT INCREASED
  4. SYNTHROID [Concomitant]
  5. OMEPRAZOLE [Concomitant]
  6. PREMARIN [Concomitant]
  7. VYTORIN [Concomitant]

REACTIONS (1)
  - NO ADVERSE EVENT [None]
